FAERS Safety Report 4479351-0 (Version None)
Quarter: 2004Q4

REPORT INFORMATION
  Report Type: 
  Country: None (occurrence: None)
  Receive Date: 20041020
  Receipt Date: 20041012
  Transmission Date: 20050328
  Serious: Yes (Death)
  Sender: FDA-Public Use
  Company Number: US-JNJFOC-20040704534

PATIENT
  Sex: Male

DRUGS (4)
  1. DURAGESIC [Suspect]
     Indication: INTENTIONAL MISUSE
     Route: 049
  2. ATIVAN [Suspect]
     Indication: DRUG USE FOR UNKNOWN INDICATION
     Route: 049
  3. VICODIN [Suspect]
     Route: 049
  4. VICODIN [Suspect]
     Indication: DRUG USE FOR UNKNOWN INDICATION
     Dosage: 35 TABLETS, ORAL
     Route: 049

REACTIONS (4)
  - INTENTIONAL MISUSE [None]
  - INTENTIONAL OVERDOSE [None]
  - MEDICATION ERROR [None]
  - MULTIPLE DRUG OVERDOSE [None]
